FAERS Safety Report 11281814 (Version 2)
Quarter: 2015Q3

REPORT INFORMATION
  Report Type: Spontaneous
  Country: US (occurrence: US)
  Receive Date: 20150717
  Receipt Date: 20150827
  Transmission Date: 20151125
  Serious: No
  Sender: FDA-Public Use
  Company Number: PHEH2015US013813

PATIENT
  Sex: Female

DRUGS (2)
  1. KLONAZEPAM [Concomitant]
     Indication: PRODUCT USED FOR UNKNOWN INDICATION
     Dosage: UNK
     Route: 065
     Dates: start: 2004
  2. VIVELLE DOT [Suspect]
     Active Substance: ESTRADIOL
     Indication: HORMONE REPLACEMENT THERAPY
     Dosage: 0.025 OT, QW2
     Route: 062

REACTIONS (4)
  - Fibromyalgia [Unknown]
  - Chest discomfort [Unknown]
  - Application site hypersensitivity [Unknown]
  - Drug ineffective [Unknown]
